FAERS Safety Report 10508778 (Version 2)
Quarter: 2014Q4

REPORT INFORMATION
  Report Type: Report from Study
  Country: CH (occurrence: CH)
  Receive Date: 20141009
  Receipt Date: 20141111
  Transmission Date: 20150528
  Serious: Yes (Other)
  Sender: FDA-Public Use
  Company Number: CH-JNJFOC-20141003061

PATIENT
  Age: 57 Year
  Sex: Male

DRUGS (2)
  1. REMICADE [Suspect]
     Active Substance: INFLIXIMAB
     Indication: SPONDYLITIS
     Route: 042
     Dates: start: 20070615, end: 20131210
  2. METHOTREXATE [Suspect]
     Active Substance: METHOTREXATE
     Indication: SPONDYLITIS
     Route: 065
     Dates: start: 20040615, end: 20140307

REACTIONS (1)
  - Lymphoproliferative disorder [Recovered/Resolved]

NARRATIVE: CASE EVENT DATE: 20130106
